FAERS Safety Report 26164083 (Version 1)
Quarter: 2025Q4

REPORT INFORMATION
  Report Type: Report from Study
  Country: GB (occurrence: GB)
  Receive Date: 20251216
  Receipt Date: 20251216
  Transmission Date: 20260118
  Serious: Yes (Other)
  Sender: SANOFI AVENTIS
  Company Number: GB-SA-2025SA323889

PATIENT
  Age: 22 Year
  Sex: Female

DRUGS (2)
  1. DUPILUMAB [Suspect]
     Active Substance: DUPILUMAB
     Indication: Dermatitis atopic
     Dosage: 2 DF, 1X
     Route: 058
     Dates: start: 202510, end: 202510
  2. DUPILUMAB [Suspect]
     Active Substance: DUPILUMAB
     Dosage: 1 DF, QOW
     Route: 058
     Dates: start: 2025

REACTIONS (11)
  - Suicidal ideation [Unknown]
  - Self-injurious ideation [Unknown]
  - Mental disorder due to a general medical condition [Unknown]
  - Condition aggravated [Unknown]
  - Pain [Unknown]
  - Skin tightness [Unknown]
  - Emotional distress [Unknown]
  - General physical health deterioration [Unknown]
  - Pain in extremity [Unknown]
  - Arthralgia [Unknown]
  - Dermatitis atopic [Unknown]

NARRATIVE: CASE EVENT DATE: 20250101
